FAERS Safety Report 8056908-1 (Version None)
Quarter: 2012Q1

REPORT INFORMATION
  Report Type: 
  Country: None (occurrence: None)
  Receive Date: 20120119
  Receipt Date: 20120111
  Transmission Date: 20120608
  Serious: Yes (Hospitalization)
  Sender: FDA-Public Use
  Company Number: US-B.I. PHARMACEUTICALS,INC./RIDGEFIELD-2011-RU-00142BP

PATIENT
  Sex: Female

DRUGS (18)
  1. ADVAIR DISKUS 100/50 [Suspect]
     Indication: CHRONIC OBSTRUCTIVE PULMONARY DISEASE
     Dosage: 250 MCG
     Route: 055
     Dates: start: 20111214
  2. SOLU-MEDROL [Suspect]
     Indication: CHRONIC OBSTRUCTIVE PULMONARY DISEASE
     Dosage: 125 MG
     Route: 042
     Dates: start: 20111214, end: 20111214
  3. FLONASE [Suspect]
     Indication: CHRONIC OBSTRUCTIVE PULMONARY DISEASE
     Dosage: 500 MCG
     Dates: start: 20111214
  4. PREDNISONE TAB [Suspect]
     Dosage: 60 MG
     Route: 048
     Dates: start: 20111218, end: 20111221
  5. ZITHROMAX [Suspect]
     Indication: CHRONIC OBSTRUCTIVE PULMONARY DISEASE
     Dosage: 500 MG
     Route: 042
     Dates: start: 20111214, end: 20111214
  6. PREDNISONE TAB [Suspect]
     Indication: CHRONIC OBSTRUCTIVE PULMONARY DISEASE
     Dosage: 30 MG
     Route: 048
     Dates: start: 20111226, end: 20111229
  7. PREDNISONE TAB [Suspect]
     Dosage: 20 MG
     Route: 048
     Dates: start: 20111230, end: 20120102
  8. PREDNISONE TAB [Suspect]
     Dosage: 10 MG
     Route: 048
     Dates: start: 20120103, end: 20120106
  9. LEVAQUIN [Suspect]
     Dosage: 750 MG
     Route: 042
     Dates: start: 20111214, end: 20111221
  10. ROCEPHIN [Suspect]
     Indication: CHRONIC OBSTRUCTIVE PULMONARY DISEASE
     Dosage: 1 G
     Route: 042
     Dates: start: 20111214, end: 20111214
  11. SOLU-MEDROL [Suspect]
     Dosage: 240 MG
     Route: 042
     Dates: start: 20111214, end: 20111217
  12. DUONEB [Suspect]
     Indication: CHRONIC OBSTRUCTIVE PULMONARY DISEASE
     Dosage: 2.5 MG
     Dates: start: 20111214, end: 20111221
  13. PREDNISONE TAB [Suspect]
     Dosage: 40 MG
     Route: 048
     Dates: start: 20111222, end: 20111225
  14. BLIND (BI 1744+TIOTROPIUM) [Suspect]
     Indication: CHRONIC OBSTRUCTIVE PULMONARY DISEASE
     Dates: start: 20111104
  15. ALBUTEROL [Suspect]
     Indication: CHRONIC OBSTRUCTIVE PULMONARY DISEASE
     Dosage: 90 MCG
     Route: 055
     Dates: start: 20111214
  16. MUCINEX DM [Suspect]
     Indication: CHRONIC OBSTRUCTIVE PULMONARY DISEASE
     Dosage: 1800 MG
     Route: 048
     Dates: start: 20111214
  17. LEVAQUIN [Suspect]
     Indication: CHRONIC OBSTRUCTIVE PULMONARY DISEASE
     Dosage: 750 MG
     Route: 048
     Dates: start: 20111222, end: 20111226
  18. SPIRIVA [Suspect]
     Indication: CHRONIC OBSTRUCTIVE PULMONARY DISEASE
     Dosage: 18 MCG
     Route: 055
     Dates: start: 20111229

REACTIONS (1)
  - CHRONIC OBSTRUCTIVE PULMONARY DISEASE [None]
